FAERS Safety Report 26046141 (Version 3)
Quarter: 2025Q4

REPORT INFORMATION
  Report Type: Report from Study
  Country: CO (occurrence: None)
  Receive Date: 20251114
  Receipt Date: 20251230
  Transmission Date: 20260117
  Serious: Yes (Hospitalization)
  Sender: CHIESI
  Company Number: CO-CHIESI-2025CHF08064

PATIENT
  Age: 24 Year
  Sex: Female
  Weight: 42 kg

DRUGS (2)
  1. METRELEPTIN [Suspect]
     Active Substance: METRELEPTIN
     Indication: Lipodystrophy acquired
     Dosage: 2.5 MILLIGRAM, QD
     Dates: start: 20251020, end: 20251103
  2. METRELEPTIN [Suspect]
     Active Substance: METRELEPTIN
     Dosage: 2.5 MILLIGRAM, QD
     Dates: start: 20251111, end: 20251129

REACTIONS (2)
  - Ascites [Recovered/Resolved]
  - Ascites [Recovered/Resolved]

NARRATIVE: CASE EVENT DATE: 20251104
